FAERS Safety Report 21466719 (Version 3)
Quarter: 2022Q4

REPORT INFORMATION
  Report Type: Report from Study
  Country: US (occurrence: US)
  Receive Date: 20221017
  Receipt Date: 20221122
  Transmission Date: 20230113
  Serious: Yes (Other)
  Sender: FDA-Public Use
  Company Number: US-HORIZON THERAPEUTICS-HZN-2022-001029

PATIENT

DRUGS (2)
  1. TEPEZZA [Suspect]
     Active Substance: TEPROTUMUMAB-TRBW
     Indication: Endocrine ophthalmopathy
     Dosage: 10 MG/KG FIRST INFUSION, FOLLOWED BY 20MG/KG FOR ADDITIONAL 7 INFUSIONS, EVERY 3 WEEKS OVER 60 T0 90
     Route: 042
     Dates: start: 20220203
  2. TEPEZZA [Suspect]
     Active Substance: TEPROTUMUMAB-TRBW
     Dosage: 20 MG/KG, EVERY 3 WEEKS OVER 60 TO 90 MINUTES (8TH INFUSION)
     Route: 042
     Dates: start: 202207

REACTIONS (9)
  - Diabetes mellitus [Not Recovered/Not Resolved]
  - Eye pain [Not Recovered/Not Resolved]
  - Onychoclasis [Not Recovered/Not Resolved]
  - Headache [Not Recovered/Not Resolved]
  - Muscle spasms [Unknown]
  - Alopecia [Not Recovered/Not Resolved]
  - Urinary tract infection [Unknown]
  - Vulvovaginal pain [Unknown]
  - Vision blurred [Not Recovered/Not Resolved]

NARRATIVE: CASE EVENT DATE: 20220101
